FAERS Safety Report 8535702-9 (Version None)
Quarter: 2012Q3

REPORT INFORMATION
  Report Type: 
  Country: None (occurrence: None)
  Receive Date: 20120725
  Receipt Date: 20120719
  Transmission Date: 20120928
  Serious: No
  Sender: FDA-Public Use
  Company Number: US-PFIZER INC-2012132679

PATIENT
  Sex: Female
  Weight: 95.238 kg

DRUGS (13)
  1. SEROQUEL [Concomitant]
     Indication: ANXIETY
  2. TRAZODONE [Concomitant]
     Indication: SLEEP DISORDER
     Dosage: 5 MG, AS NEEDED
  3. INSULIN [Concomitant]
     Indication: DIABETES MELLITUS
     Dosage: UNK
  4. LEXAPRO [Concomitant]
     Indication: ANXIETY
  5. SEROQUEL [Concomitant]
     Indication: DEPRESSION
     Dosage: 200 MG, DAILY
  6. SUTENT [Suspect]
     Indication: PANCREATIC NEUROENDOCRINE TUMOUR
     Dosage: UNK
     Dates: start: 20120704
  7. LIPITOR [Concomitant]
     Indication: BLOOD CHOLESTEROL INCREASED
     Dosage: 40 MG, AT EVENING
  8. SUTENT [Suspect]
     Indication: PANCREATIC CARCINOMA
     Dosage: 12.5 MG, 3X/DAY
     Dates: start: 20120428, end: 20120613
  9. SUTENT [Suspect]
     Indication: HEPATIC NEOPLASM MALIGNANT
     Dosage: 12.5 MG, 3X/DAY
     Dates: start: 20120618, end: 20120701
  10. LEXAPRO [Concomitant]
     Indication: DEPRESSION
     Dosage: 40 MG, DAILY
  11. LISINOPRIL [Concomitant]
     Dosage: 20 MG, DAILY
  12. ZANTAC [Concomitant]
     Indication: DYSPEPSIA
     Dosage: 150 MG, AS NEEDED
  13. CELEXA [Concomitant]
     Dosage: UNK

REACTIONS (11)
  - ORAL PAIN [None]
  - ORAL HERPES [None]
  - GLOSSODYNIA [None]
  - HAIR COLOUR CHANGES [None]
  - PLANTAR ERYTHEMA [None]
  - BLOOD POTASSIUM DECREASED [None]
  - WEIGHT DECREASED [None]
  - EXOSTOSIS [None]
  - LACRIMATION INCREASED [None]
  - STOMATITIS [None]
  - SKIN LESION [None]
